FAERS Safety Report 15886932 (Version 4)
Quarter: 2019Q2

REPORT INFORMATION
  Report Type: Spontaneous
  Country: DE (occurrence: DE)
  Receive Date: 20190130
  Receipt Date: 20190418
  Transmission Date: 20190711
  Serious: No
  Sender: FDA-Public Use
  Company Number: DE-ROCHE-2254559

PATIENT
  Age: 41 Year
  Sex: Female

DRUGS (1)
  1. MABTHERA [Suspect]
     Active Substance: RITUXIMAB
     Indication: RELAPSING-REMITTING MULTIPLE SCLEROSIS
     Route: 065

REACTIONS (3)
  - Intentional product use issue [Unknown]
  - No adverse event [Unknown]
  - Off label use [Unknown]
